FAERS Safety Report 4288004-3 (Version None)
Quarter: 2004Q1

REPORT INFORMATION
  Report Type: 
  Country: None (occurrence: None)
  Receive Date: 20040209
  Receipt Date: 20031114
  Transmission Date: 20041129
  Serious: No
  Sender: FDA-Public Use
  Company Number: US-GLAXOSMITHKLINE-A0439821A

PATIENT
  Age: 69 Year
  Sex: Female

DRUGS (2)
  1. PAXIL [Suspect]
     Indication: PANIC DISORDER
     Dosage: 12.5MG PER DAY
     Route: 048
     Dates: start: 20030701
  2. XANAX [Concomitant]

REACTIONS (2)
  - ANXIETY [None]
  - INSOMNIA [None]
